FAERS Safety Report 7203433-3 (Version None)
Quarter: 2010Q4

REPORT INFORMATION
  Report Type: 
  Country: None (occurrence: None)
  Receive Date: 20101230
  Receipt Date: 20101227
  Transmission Date: 20110411
  Serious: No
  Sender: FDA-Public Use
  Company Number: JP-JNJFOC-20101206841

PATIENT
  Age: 61 Year
  Sex: Female

DRUGS (2)
  1. DUROTEP MT [Suspect]
     Indication: ILL-DEFINED DISORDER
     Route: 062
  2. DUROTEP MT [Suspect]
     Route: 062

REACTIONS (4)
  - DRUG EFFECT INCREASED [None]
  - DRUG LEVEL INCREASED [None]
  - PRURITUS [None]
  - WRONG TECHNIQUE IN DRUG USAGE PROCESS [None]
